FAERS Safety Report 19998111 (Version 8)
Quarter: 2024Q4

REPORT INFORMATION
  Report Type: Report from Study
  Country: US (occurrence: US)
  Receive Date: 20211026
  Receipt Date: 20241113
  Transmission Date: 20250115
  Serious: Yes (Hospitalization, Other)
  Sender: TAKEDA
  Company Number: US-SHIRE-US201914596AA

PATIENT
  Age: 64 Year
  Sex: Female

DRUGS (6)
  1. HUMAN IMMUNOGLOBULIN G [Suspect]
     Active Substance: HUMAN IMMUNOGLOBULIN G
     Indication: Primary immunodeficiency syndrome
     Dosage: 15 GRAM, 1/WEEK
  2. CUVITRU [Suspect]
     Active Substance: HUMAN IMMUNOGLOBULIN G
     Indication: Primary immunodeficiency syndrome
     Dosage: UNK
  3. CUVITRU [Suspect]
     Active Substance: HUMAN IMMUNOGLOBULIN G
     Indication: Immunodeficiency common variable
     Dosage: UNK
  4. HUMAN IMMUNOGLOBULIN G [Suspect]
     Active Substance: HUMAN IMMUNOGLOBULIN G
     Dosage: UNK
  5. HIZENTRA [Suspect]
     Active Substance: HUMAN IMMUNOGLOBULIN G
     Dosage: UNK
  6. HYDROXYZINE HYDROCHLORIDE [Concomitant]
     Active Substance: HYDROXYZINE HYDROCHLORIDE
     Indication: Product used for unknown indication
     Dosage: UNK

REACTIONS (20)
  - Neuropathy peripheral [Unknown]
  - Lyme disease [Unknown]
  - Migraine [Recovering/Resolving]
  - Meningitis aseptic [Unknown]
  - Inflammation [Recovered/Resolved]
  - Gastrointestinal inflammation [Unknown]
  - Headache [Recovered/Resolved]
  - Feeding disorder [Unknown]
  - Weight decreased [Unknown]
  - Illness [Unknown]
  - Post procedural infection [Unknown]
  - Product dose omission issue [Unknown]
  - Nasopharyngitis [Recovered/Resolved]
  - Drug hypersensitivity [Recovering/Resolving]
  - Abdominal discomfort [Unknown]
  - Abdominal pain upper [Unknown]
  - Malaise [Unknown]
  - Diarrhoea [Unknown]
  - Back pain [Unknown]
  - Arthralgia [Unknown]

NARRATIVE: CASE EVENT DATE: 20241003
